FAERS Safety Report 8138952-9 (Version None)
Quarter: 2012Q1

REPORT INFORMATION
  Report Type: 
  Country: None (occurrence: None)
  Receive Date: 20120215
  Receipt Date: 20120206
  Transmission Date: 20120608
  Serious: Yes (Other)
  Sender: FDA-Public Use
  Company Number: US-JNJFOC-20120101259

PATIENT
  Sex: Female
  Weight: 90.72 kg

DRUGS (7)
  1. STELARA [Suspect]
     Route: 058
     Dates: start: 20111011
  2. MULTI-VITAMINS [Concomitant]
  3. STELARA [Suspect]
     Indication: PSORIASIS
     Route: 058
     Dates: start: 20100504
  4. STELARA [Suspect]
     Route: 058
     Dates: start: 20111206
  5. STELARA [Suspect]
     Route: 058
     Dates: start: 20101214
  6. STELARA [Suspect]
     Route: 058
     Dates: start: 20100909
  7. STELARA [Suspect]
     Route: 058
     Dates: start: 20110331

REACTIONS (1)
  - CEREBROVASCULAR ACCIDENT [None]
